FAERS Safety Report 9960615 (Version 2)
Quarter: 2014Q1

REPORT INFORMATION
  Report Type: Spontaneous
  Country: US (occurrence: None)
  Receive Date: 20140228
  Receipt Date: 20140314
  Transmission Date: 20141002
  Serious: Yes (Other)
  Sender: FDA-Public Use
  Company Number: 2014-US-001291

PATIENT
  Age: 39 Year
  Sex: Female
  Weight: 88.8 kg

DRUGS (6)
  1. XYREM [Suspect]
     Indication: NARCOLEPSY
     Route: 048
     Dates: start: 200804
  2. XYREM [Suspect]
     Indication: CATAPLEXY
     Route: 048
     Dates: start: 200804
  3. ADDERALL (AMFETAMINE ASPARTATE, AMFETAMINE SULFATE, DEXAMFETAMINE SACCHARATE, DEXAMFETAMINE SULFATE) TABLET [Concomitant]
  4. PRILOSEC (OMEPRAZOLE MAGNESIUM) [Concomitant]
  5. ADVIL (IBUPROFEN) TABLET [Concomitant]
  6. TYLENOL (ACETAMINOPHEN) TABLET [Concomitant]

REACTIONS (10)
  - Mental status changes [None]
  - Unresponsive to stimuli [None]
  - Breath sounds absent [None]
  - Haemoglobin decreased [None]
  - Sedation [None]
  - Hangover [None]
  - Malaise [None]
  - Mean cell haemoglobin decreased [None]
  - Mean cell haemoglobin concentration decreased [None]
  - Red cell distribution width increased [None]
